FAERS Safety Report 12311555 (Version 1)
Quarter: 2016Q2

REPORT INFORMATION
  Report Type: Report from Study
  Country: US (occurrence: US)
  Receive Date: 20160427
  Receipt Date: 20160427
  Transmission Date: 20160815
  Serious: Yes (Congenital Anomaly)
  Sender: FDA-Public Use
  Company Number: US-ABBVIE-16K-163-1614070-00

PATIENT
  Weight: 3.39 kg

DRUGS (1)
  1. HUMIRA [Suspect]
     Active Substance: ADALIMUMAB
     Indication: MATERNAL EXPOSURE TIMING UNSPECIFIED
     Route: 064

REACTIONS (6)
  - Cyanosis neonatal [Unknown]
  - C-reactive protein increased [Unknown]
  - Hypotonia neonatal [Unknown]
  - Sepsis neonatal [Unknown]
  - Foetal exposure during pregnancy [Unknown]
  - Bradycardia neonatal [Unknown]

NARRATIVE: CASE EVENT DATE: 20121210
